FAERS Safety Report 7584920-5 (Version None)
Quarter: 2011Q2

REPORT INFORMATION
  Report Type: 
  Country: None (occurrence: None)
  Receive Date: 20110630
  Receipt Date: 20080720
  Transmission Date: 20111010
  Serious: Yes (Other)
  Sender: FDA-Public Use
  Company Number: US-BAYER-200823454NA

PATIENT
  Sex: Male
  Weight: 67.574 kg

DRUGS (17)
  1. PROHANCE [Suspect]
     Indication: NUCLEAR MAGNETIC RESONANCE IMAGING
  2. ADVAIR DISKUS 100/50 [Concomitant]
  3. NORVASC [Concomitant]
  4. OMNISCAN [Suspect]
     Indication: NUCLEAR MAGNETIC RESONANCE IMAGING
  5. TRIAMCINOLONE ACETONIDE [Concomitant]
  6. SINGULAIR [Concomitant]
  7. COMBIVENT [Concomitant]
  8. CHANTIX [Concomitant]
  9. MAGNEVIST [Suspect]
     Indication: NUCLEAR MAGNETIC RESONANCE IMAGING
     Dosage: UNK
  10. ASPIRIN [Concomitant]
  11. HYOSCYAMINE [Concomitant]
  12. NULEV [Concomitant]
  13. OPTIMARK [Suspect]
     Indication: NUCLEAR MAGNETIC RESONANCE IMAGING
  14. HYZAAR [Concomitant]
  15. GLUCOSAMINE [Concomitant]
  16. MULTIHANCE [Suspect]
     Indication: NUCLEAR MAGNETIC RESONANCE IMAGING
  17. LOVAZA [Concomitant]

REACTIONS (12)
  - NEPHROGENIC SYSTEMIC FIBROSIS [None]
  - FIBROSIS [None]
  - GENERAL PHYSICAL HEALTH DETERIORATION [None]
  - JOINT STIFFNESS [None]
  - EMOTIONAL DISTRESS [None]
  - MUSCULAR WEAKNESS [None]
  - PAIN [None]
  - MOBILITY DECREASED [None]
  - SKIN FIBROSIS [None]
  - JOINT CONTRACTURE [None]
  - INJURY [None]
  - SCAR [None]
